FAERS Safety Report 7631600-3 (Version None)
Quarter: 2011Q3

REPORT INFORMATION
  Report Type: 
  Country: None (occurrence: None)
  Receive Date: 20110725
  Receipt Date: 20110114
  Transmission Date: 20111222
  Serious: No
  Sender: FDA-Public Use
  Company Number: US-BRISTOL-MYERS SQUIBB COMPANY-15487127

PATIENT
  Age: 66 Year
  Sex: Female
  Weight: 86 kg

DRUGS (8)
  1. TRAZODONE HCL [Concomitant]
  2. PRILOSEC [Concomitant]
     Indication: ANXIETY
  3. CLONOPIN [Concomitant]
     Indication: ANXIETY
  4. NEURONTIN [Concomitant]
  5. LEXAPRO [Concomitant]
     Indication: DEPRESSION
  6. WARFARIN SODIUM [Suspect]
     Dosage: STARTED SEVERAL WEEKS AGO. DOSE INCREASED TO 7.5MG
  7. REQUIP [Concomitant]
     Indication: RESTLESS LEGS SYNDROME
  8. AMBIEN [Concomitant]

REACTIONS (1)
  - INTERNATIONAL NORMALISED RATIO DECREASED [None]
